FAERS Safety Report 16462428 (Version 1)
Quarter: 2019Q2

REPORT INFORMATION
  Report Type: Spontaneous
  Country: JP (occurrence: JP)
  Receive Date: 20190621
  Receipt Date: 20190621
  Transmission Date: 20190711
  Serious: Yes (Other)
  Sender: FDA-Public Use
  Company Number: JP-PFIZER INC-2019137049

PATIENT
  Age: 77 Year
  Sex: Male

DRUGS (5)
  1. LYRICA [Suspect]
     Active Substance: PREGABALIN
     Indication: HYPOAESTHESIA
     Dosage: 75 MG, 2X/DAY (MORNING AND EVENING)
     Route: 048
     Dates: start: 20190221, end: 20190308
  2. URSO [Concomitant]
     Active Substance: URSODIOL
     Dosage: 100 MG, 3X/DAY
  3. CALONAL [Concomitant]
     Active Substance: ACETAMINOPHEN
     Dosage: 500 (UNITES NOT PROVIDED)
     Dates: start: 20190307
  4. TAKEPRON [Concomitant]
     Active Substance: LANSOPRAZOLE
     Dosage: ONE TABLET DAILY
  5. DAIKENCHUTO [Concomitant]
     Active Substance: HERBALS
     Dosage: UNK, 3X/DAY
     Dates: start: 20190207

REACTIONS (2)
  - Pyrexia [Recovered/Resolved]
  - Neutrophil count decreased [Recovered/Resolved]

NARRATIVE: CASE EVENT DATE: 20190223
